FAERS Safety Report 25364377 (Version 2)
Quarter: 2025Q2

REPORT INFORMATION
  Report Type: Spontaneous
  Country: AR (occurrence: AR)
  Receive Date: 20250527
  Receipt Date: 20250620
  Transmission Date: 20250717
  Serious: No
  Sender: PFIZER
  Company Number: AR-PFIZER INC-202500101989

PATIENT
  Age: 75 Year
  Sex: Male

DRUGS (6)
  1. VYNDAMAX [Suspect]
     Active Substance: TAFAMIDIS
     Indication: Cardiac amyloidosis
     Dosage: 61 MG, DAILY
     Dates: start: 20250228
  2. URSODIOL [Concomitant]
     Active Substance: URSODIOL
  3. LIPITOR [Concomitant]
     Active Substance: ATORVASTATIN CALCIUM
     Indication: Blood cholesterol abnormal
  4. POTASSIUM [Concomitant]
     Active Substance: POTASSIUM
     Indication: Blood potassium abnormal
  5. EPLERENONE [Concomitant]
     Active Substance: EPLERENONE
  6. ELIQUIS [Concomitant]
     Active Substance: APIXABAN
     Dates: start: 2016

REACTIONS (1)
  - No adverse event [Unknown]
